FAERS Safety Report 4761421-0 (Version None)
Quarter: 2005Q3

REPORT INFORMATION
  Report Type: 
  Country: None (occurrence: None)
  Receive Date: 20050901
  Receipt Date: 20050824
  Transmission Date: 20060218
  Serious: Yes (Other)
  Sender: FDA-Public Use
  Company Number: 2005119935

PATIENT
  Sex: Female

DRUGS (1)
  1. CABERGOLINE [Suspect]
     Indication: ILL-DEFINED DISORDER

REACTIONS (4)
  - DIFFICULTY IN WALKING [None]
  - PELVIC PAIN [None]
  - VISION BLURRED [None]
  - VISUAL DISTURBANCE [None]
